FAERS Safety Report 24240589 (Version 1)
Quarter: 2024Q3

REPORT INFORMATION
  Report Type: Report from Study
  Country: US (occurrence: US)
  Receive Date: 20240822
  Receipt Date: 20240822
  Transmission Date: 20241016
  Serious: Yes (Other)
  Sender: ABBVIE
  Company Number: US-ABBVIE-5885244

PATIENT
  Age: 61 Year
  Sex: Female

DRUGS (1)
  1. HUMIRA [Suspect]
     Active Substance: ADALIMUMAB
     Indication: Rheumatoid arthritis
     Route: 058
     Dates: start: 20220429

REACTIONS (4)
  - Gallbladder operation [Unknown]
  - Neuropathy peripheral [Unknown]
  - Prescription drug used without a prescription [Unknown]
  - Foot deformity [Unknown]

NARRATIVE: CASE EVENT DATE: 20240809
